FAERS Safety Report 7595315-2 (Version None)
Quarter: 2011Q3

REPORT INFORMATION
  Report Type: 
  Country: None (occurrence: None)
  Receive Date: 20110707
  Receipt Date: 20110623
  Transmission Date: 20111222
  Serious: Yes (Death)
  Sender: FDA-Public Use
  Company Number: FR-KINGPHARMUSA00001-K201100788

PATIENT
  Sex: Male

DRUGS (6)
  1. ATORVASTATIN CALCIUM [Suspect]
     Dosage: 10 MG, QD
     Route: 048
     Dates: start: 20070723
  2. IPERTEN [Suspect]
     Dosage: 10 MG, QD
     Dates: start: 20070723
  3. METFORMIN HCL [Suspect]
     Dosage: 850 MG, TID
     Dates: start: 20070723
  4. ALTACE [Suspect]
     Dosage: 5 MG, QD
     Route: 048
     Dates: start: 20070723
  5. MEDIATOR [Concomitant]
     Dosage: UNK
     Dates: start: 20090717, end: 20100130
  6. PLAVIX [Suspect]
     Dosage: 75 MG, QD
     Dates: start: 20070723

REACTIONS (3)
  - CARDIAC FAILURE [None]
  - CORONARY ARTERY DISEASE [None]
  - CONGESTIVE CARDIOMYOPATHY [None]
